FAERS Safety Report 4680817-9 (Version None)
Quarter: 2005Q2

REPORT INFORMATION
  Report Type: 
  Country: None (occurrence: None)
  Receive Date: 20050601
  Receipt Date: 20050527
  Transmission Date: 20051028
  Serious: Yes (Hospitalization, Disabling)
  Sender: FDA-Public Use
  Company Number: TCI2005A01936

PATIENT
  Age: 80 Year
  Sex: Male

DRUGS (5)
  1. LEUPLIN FOR INJECTION KITS3.75 (LEUPROLIDE ACETATE) (INJECTION) [Suspect]
     Indication: PROSTATE CANCER
     Dosage: 3.75 MG (3.75 MG, 1 IN 28 D)
     Route: 058
     Dates: start: 20041020
  2. TAKEPRON (LANSOPRAZOLE) [Concomitant]
  3. ONE-ALPHA (ALFACALCIDOL) [Concomitant]
  4. GLAKAY (MENATETRENONE) [Concomitant]
  5. ALLOPURINOL [Concomitant]

REACTIONS (11)
  - ASCITES [None]
  - BLOOD PRESSURE DECREASED [None]
  - BLOOD URINE PRESENT [None]
  - GLOMERULONEPHRITIS MEMBRANOUS [None]
  - HYPERLIPIDAEMIA [None]
  - HYPERPLASIA [None]
  - HYPOPROTEINAEMIA [None]
  - NEPHROTIC SYNDROME [None]
  - PERICARDIAL EFFUSION [None]
  - PLEURAL EFFUSION [None]
  - RENAL CYST [None]
